FAERS Safety Report 10328840 (Version 4)
Quarter: 2014Q4

REPORT INFORMATION
  Report Type: Spontaneous
  Country: JP (occurrence: None)
  Receive Date: 20140717
  Receipt Date: 20141014
  Transmission Date: 20150528
  Serious: Yes (Hospitalization, Other)
  Sender: FDA-Public Use
  Company Number: 2014-JP-0052

PATIENT
  Age: 47 Year
  Sex: Female

DRUGS (3)
  1. FARESTON (NON-US) (TOREMIFENE) [Suspect]
     Active Substance: TOREMIFENE CITRATE
     Indication: BREAST CANCER
     Dosage: 40 MG X 1 PER 1 DAY, ORAL ?
     Route: 048
     Dates: start: 201102, end: 201110
  2. PREDNISOLONE (PREDNISOLONE) [Concomitant]
     Active Substance: PREDNISOLONE
  3. FEMARA [Concomitant]
     Active Substance: LETROZOLE

REACTIONS (3)
  - Metrorrhagia [None]
  - Endometrial cancer [None]
  - Uterine cancer [None]

NARRATIVE: CASE EVENT DATE: 201110
